FAERS Safety Report 6036029-X (Version None)
Quarter: 2009Q1

REPORT INFORMATION
  Report Type: 
  Country: None (occurrence: None)
  Receive Date: 20090113
  Receipt Date: 20090105
  Transmission Date: 20090719
  Serious: Yes (Other)
  Sender: FDA-Public Use
  Company Number: US-CELGENEUS-163-20785-09010131

PATIENT
  Sex: Male

DRUGS (1)
  1. THALOMID [Suspect]
     Indication: NEUROFIBROMATOSIS
     Route: 048
     Dates: start: 20080520, end: 20080903

REACTIONS (2)
  - CARDIAC DISORDER [None]
  - CHRONIC OBSTRUCTIVE PULMONARY DISEASE [None]
